FAERS Safety Report 9961324 (Version 1)
Quarter: 2014Q1

REPORT INFORMATION
  Report Type: Spontaneous
  Country: US (occurrence: None)
  Receive Date: 20140127
  Receipt Date: 20140127
  Transmission Date: 20141002
  Serious: Yes (Other)
  Sender: FDA-Public Use
  Company Number: 1252378

PATIENT
  Age: 58 Year
  Sex: Female
  Weight: 66.23 kg

DRUGS (6)
  1. RITUXAN [Suspect]
     Indication: RHEUMATOID ARTHRITIS
     Dosage: 1000 MG, INTRAVENOUS (NOT OTHERWISE SPECIFIED)
     Route: 042
     Dates: start: 20020707
  2. AZULFIDINE (SULFASALAZINE) [Concomitant]
  3. METHOTREXATE (METHOTREXATE) [Concomitant]
  4. FOLIC ACID (FOLIC ACID) [Concomitant]
  5. NORCO (HYDROCODONE TARTRATE, PARACETAMOL) [Concomitant]
  6. BENADRYL (DIPHENHYDRAMINE HYDROCHLORIDE) [Concomitant]

REACTIONS (1)
  - Sinus congestion [None]
